FAERS Safety Report 20854091 (Version 1)
Quarter: 2022Q2

REPORT INFORMATION
  Report Type: Report from Study
  Country: FR (occurrence: FR)
  Receive Date: 20220520
  Receipt Date: 20220520
  Transmission Date: 20220721
  Serious: Yes (Disabling)
  Sender: FDA-Public Use
  Company Number: FR-SERVIER-S21012937

PATIENT

DRUGS (5)
  1. PEGASPARGASE [Suspect]
     Active Substance: PEGASPARGASE
     Indication: Acute lymphocytic leukaemia
     Dosage: 4000 IU, D12, D15, D43: B-MR, D4, D43 B-HR
     Route: 042
     Dates: start: 20170918, end: 20190926
  2. PREDNISONE [Suspect]
     Active Substance: PREDNISONE
     Indication: Acute lymphocytic leukaemia
     Dosage: 90 MG, D1 TO D7 PRE-PHASE
     Route: 048
     Dates: start: 20170907, end: 20170914
  3. PREDNISOLONE [Suspect]
     Active Substance: PREDNISOLONE
     Indication: Acute lymphocytic leukaemia
     Dosage: 90 MG, D8 TO D28 INDUCTION B-MR
     Route: 048
     Dates: start: 20170914, end: 20171004
  4. DEXAMETHASONE [Suspect]
     Active Substance: DEXAMETHASONE
     Indication: Acute lymphocytic leukaemia
     Dosage: 15 MG, D1 TO D7, D15 TO D21 DELAYED INTENSIFICATION 1 B-HR, D1 TO D7, D15 TO D21 DELAYED INTENSIFICA
     Route: 048
     Dates: start: 20180312, end: 20180902
  5. PHYTONADIONE [Concomitant]
     Active Substance: PHYTONADIONE
     Indication: Product used for unknown indication
     Dosage: UNK
     Route: 065

REACTIONS (1)
  - Osteonecrosis [Not Recovered/Not Resolved]

NARRATIVE: CASE EVENT DATE: 20191202
